FAERS Safety Report 7984669-0 (Version None)
Quarter: 2011Q4

REPORT INFORMATION
  Report Type: 
  Country: None (occurrence: None)
  Receive Date: 20111216
  Receipt Date: 20111202
  Transmission Date: 20120403
  Serious: Yes (Hospitalization, Other)
  Sender: FDA-Public Use
  Company Number: GB-CELGENEUS-167-21880-11120534

PATIENT
  Sex: Male
  Weight: 60.9 kg

DRUGS (23)
  1. DEXAMETHASONE TAB [Suspect]
     Route: 048
     Dates: start: 20111103
  2. ALLOPURINOL [Concomitant]
     Dosage: 300 MILLIGRAM
     Route: 048
     Dates: start: 20101023, end: 20111102
  3. SIMVASTATIN [Concomitant]
     Indication: PROPHYLAXIS
     Route: 048
     Dates: start: 20101023, end: 20101101
  4. REVLIMID [Suspect]
     Indication: MULTIPLE MYELOMA
     Dosage: 15 MILLIGRAM
     Route: 048
     Dates: start: 20100908, end: 20110118
  5. REVLIMID [Suspect]
     Dosage: 15 MILLIGRAM
     Route: 048
     Dates: start: 20110422, end: 20111027
  6. LANSOPRAZOLE [Concomitant]
     Indication: PROPHYLAXIS
     Dosage: 30 MILLIGRAM
     Route: 048
     Dates: start: 20101023, end: 20101102
  7. MEROPENEM [Concomitant]
     Indication: INFECTION PROPHYLAXIS
     Route: 048
  8. CALCEOS [Concomitant]
     Route: 048
     Dates: start: 20110210, end: 20110419
  9. REVLIMID [Suspect]
     Dosage: DAY 1-21
     Route: 048
     Dates: start: 20110210, end: 20110412
  10. GABAPENTIN [Concomitant]
     Indication: DRUG THERAPY
     Route: 048
     Dates: start: 20101023, end: 20101102
  11. ORAMORPH SR [Concomitant]
     Route: 048
     Dates: start: 20101026, end: 20101102
  12. WARFARIN SODIUM [Concomitant]
     Indication: ANTICOAGULANT THERAPY
     Route: 065
  13. CALCEOS [Concomitant]
     Route: 048
     Dates: start: 20110422, end: 20111201
  14. ASPIRIN [Concomitant]
     Indication: PROPHYLAXIS
     Route: 065
  15. AMITRIPTYLINE HCL [Concomitant]
     Indication: ANTIDEPRESSANT THERAPY
     Route: 048
     Dates: start: 20101023, end: 20101101
  16. GENTAMICIN [Concomitant]
     Indication: VIRAL INFECTION
     Route: 041
  17. OMEPRAZOLE [Concomitant]
     Route: 048
     Dates: start: 20101006, end: 20111201
  18. REVLIMID [Suspect]
     Dosage: 10 MILLIGRAM
     Route: 048
     Dates: start: 20111104, end: 20111124
  19. PHOSHATE SANDOZ [Concomitant]
     Indication: VITAMIN D
     Route: 048
     Dates: start: 20101024, end: 20101029
  20. MAGNESIUM OXIDE [Concomitant]
     Route: 048
  21. CALCEOS [Concomitant]
     Dosage: .3267 GRAM
     Route: 048
     Dates: start: 20101201, end: 20110125
  22. DEXAMETHASONE TAB [Suspect]
     Indication: MULTIPLE MYELOMA
     Dosage: 5.3333 MILLIGRAM
     Route: 048
     Dates: start: 20100908, end: 20101027
  23. ALLOPURINOL [Concomitant]
     Indication: PROPHYLAXIS
     Dosage: 280 MILLIGRAM
     Route: 048
     Dates: start: 20101006, end: 20110118

REACTIONS (3)
  - HYPERCALCAEMIA [None]
  - FEBRILE NEUTROPENIA [None]
  - HYPOCALCAEMIA [None]
